FAERS Safety Report 9028744 (Version 2)
Quarter: 2013Q1

REPORT INFORMATION
  Report Type: Spontaneous
  Country: US (occurrence: US)
  Receive Date: 20130124
  Receipt Date: 20130318
  Transmission Date: 20140127
  Serious: No
  Sender: FDA-Public Use
  Company Number: US-PFIZER INC-2013028414

PATIENT
  Age: 63 Year
  Sex: Male
  Weight: 122 kg

DRUGS (3)
  1. ADVIL PM [Suspect]
     Indication: SLEEP DISORDER
     Dosage: 400/76 MG, AS NEEDED (2 TABLETS OF 200/38 MG)
     Route: 048
  2. XALATAN [Concomitant]
     Indication: GLAUCOMA
     Dosage: ONE DROP IN EACH EYE DAILY
     Route: 047
  3. TIMOLOL [Concomitant]
     Indication: GLAUCOMA
     Dosage: 1 DROP IN EACH EYE TWO TIMES A DAY
     Route: 047

REACTIONS (2)
  - Drug ineffective [Unknown]
  - Product formulation issue [Unknown]
